FAERS Safety Report 19499966 (Version 1)
Quarter: 2021Q3

REPORT INFORMATION
  Report Type: Spontaneous
  Country: US (occurrence: US)
  Receive Date: 20210707
  Receipt Date: 20210707
  Transmission Date: 20211014
  Serious: Yes (Other)
  Sender: FDA-Public Use
  Company Number: US-ABBVIE-21K-163-3979834-00

PATIENT
  Sex: Female

DRUGS (2)
  1. TIROSINT [Suspect]
     Active Substance: LEVOTHYROXINE SODIUM
     Indication: PRODUCT USED FOR UNKNOWN INDICATION
     Route: 065
     Dates: start: 2006
  2. SYNTHROID [Suspect]
     Active Substance: LEVOTHYROXINE SODIUM
     Indication: PRODUCT USED FOR UNKNOWN INDICATION
     Route: 048
     Dates: start: 2006

REACTIONS (3)
  - Malaise [Unknown]
  - Thyroid cancer [Unknown]
  - Alopecia [Unknown]

NARRATIVE: CASE EVENT DATE: 2021
